FAERS Safety Report 4684111-1 (Version None)
Quarter: 2005Q2

REPORT INFORMATION
  Report Type: 
  Country: None (occurrence: None)
  Receive Date: 20050527
  Receipt Date: 20041202
  Transmission Date: 20051028
  Serious: Yes (Other)
  Sender: FDA-Public Use
  Company Number: 15614

PATIENT
  Age: 72 Year
  Sex: Male

DRUGS (3)
  1. ACYCLOVIR [Suspect]
     Indication: VARICELLA
     Dosage: 700MG IV TID
     Route: 042
     Dates: start: 20041126
  2. LASIX IV [Concomitant]
  3. NORMAL SALINE IV [Concomitant]

REACTIONS (2)
  - CHEST PAIN [None]
  - DYSPNOEA [None]
